FAERS Safety Report 4743801-2 (Version None)
Quarter: 2005Q3

REPORT INFORMATION
  Report Type: 
  Country: None (occurrence: None)
  Receive Date: 20050809
  Receipt Date: 20050513
  Transmission Date: 20060218
  Serious: Yes (Hospitalization)
  Sender: FDA-Public Use
  Company Number: 2005FR-00184

PATIENT
  Age: 82 Year
  Sex: Female

DRUGS (5)
  1. ASPIRIN [Suspect]
     Indication: PROPHYLAXIS
     Dosage: 75 MG
     Dates: end: 20050422
  2. LEVOTHYROXINE [Concomitant]
  3. BECLOMETHASONE DIPROPIONATE [Concomitant]
  4. COD LIVER OIL [Concomitant]
  5. GLUCOSAMINE [Concomitant]

REACTIONS (2)
  - OESOPHAGITIS [None]
  - UPPER GASTROINTESTINAL HAEMORRHAGE [None]
